FAERS Safety Report 6416015-8 (Version None)
Quarter: 2009Q4

REPORT INFORMATION
  Report Type: 
  Country: None (occurrence: None)
  Receive Date: 20091023
  Receipt Date: 20091008
  Transmission Date: 20100525
  Serious: Yes (Hospitalization, Other)
  Sender: FDA-Public Use
  Company Number: DSA_40590_2009

PATIENT
  Age: 80 Year
  Sex: Male
  Weight: 70 kg

DRUGS (5)
  1. VASOTEC [Suspect]
     Indication: DRUG USE FOR UNKNOWN INDICATION
     Dosage: (10 MG BID ORAL) (10 MG BID ORAL)
     Route: 048
  2. ATORVASTATIN CALCIUM [Concomitant]
  3. FERROUS SULPHATE /00023503/ (UNKNOWN) [Concomitant]
  4. OMEPRAZOLE (UNKNOWN) [Concomitant]
  5. SOTALOL HYDROCHLORIDE (UNKNOWN) [Concomitant]

REACTIONS (5)
  - ASTHENIA [None]
  - GRAND MAL CONVULSION [None]
  - HAEMOGLOBIN DECREASED [None]
  - INAPPROPRIATE ANTIDIURETIC HORMONE SECRETION [None]
  - MALAISE [None]
